FAERS Safety Report 4731378-7 (Version None)
Quarter: 2005Q3

REPORT INFORMATION
  Report Type: 
  Country: None (occurrence: None)
  Receive Date: 20050801
  Receipt Date: 20050722
  Transmission Date: 20060218
  Serious: Yes (Death, Hospitalization)
  Sender: FDA-Public Use
  Company Number: CLOF-10038

PATIENT
  Age: 63 Year
  Sex: Male

DRUGS (38)
  1. CLOFARABINE [Suspect]
     Indication: ACUTE LYMPHOCYTIC LEUKAEMIA
     Dosage: 72 MG DAILY, IV
     Route: 042
     Dates: start: 20050616, end: 20050620
  2. CYTARABINE [Suspect]
     Indication: ACUTE LYMPHOCYTIC LEUKAEMIA
     Dosage: 4820 MG DAILY, IV
     Route: 042
     Dates: start: 20050616, end: 20050620
  3. COUMADIN [Concomitant]
  4. TIZANIDINE HCL [Concomitant]
  5. LIPITOR [Concomitant]
  6. TRICOR [Concomitant]
  7. ZOLOFT [Concomitant]
  8. NABUMETONE [Concomitant]
  9. PREVACID [Concomitant]
  10. LEVAQUIN [Concomitant]
  11. DARVOCET [Concomitant]
  12. ARTIFICIAL TEARS [Concomitant]
  13. NOVOLOG [Concomitant]
  14. ADVAIR DISKUS 100/50 [Concomitant]
  15. TYLENOL (CAPLET) [Concomitant]
  16. PHENERGAN [Concomitant]
  17. BENADRYL [Concomitant]
  18. CHLORASEPTIC [Concomitant]
  19. GUAIFENESIN [Concomitant]
  20. ALUMINUM HYDROXIDE AND MAGNESIUM TRISILICATE [Concomitant]
  21. ATIVAN [Concomitant]
  22. DIMENHYDRINATE [Concomitant]
  23. METOCLOPRAMIDE [Concomitant]
  24. ALLOPURINOL [Concomitant]
  25. DIFLUCAN [Concomitant]
  26. ACYCLOVIR [Concomitant]
  27. AVELOX [Concomitant]
  28. ALBUTEROL [Concomitant]
  29. ATROVENT [Concomitant]
  30. LANTUS [Concomitant]
  31. OXYCODONE [Concomitant]
  32. ASPARAGINASE [Concomitant]
  33. DAUNORUBICIN HCL [Concomitant]
  34. VINCRISTINE [Concomitant]
  35. HEPARIN [Concomitant]
  36. LOPRESSOR [Concomitant]
  37. ABELCET [Concomitant]
  38. CASPOFUNGIN [Concomitant]

REACTIONS (14)
  - BLOOD PRESSURE SYSTOLIC DECREASED [None]
  - CANDIDIASIS [None]
  - DEPRESSED LEVEL OF CONSCIOUSNESS [None]
  - FLUID OVERLOAD [None]
  - HYPOTENSION [None]
  - NEUTROPENIA [None]
  - OEDEMA PERIPHERAL [None]
  - PLEURAL EFFUSION [None]
  - PYREXIA [None]
  - RENAL FAILURE [None]
  - RESPIRATORY DISTRESS [None]
  - SEPSIS [None]
  - SKIN NODULE [None]
  - VENTRICULAR TACHYCARDIA [None]
